FAERS Safety Report 4653461-7 (Version None)
Quarter: 2005Q2

REPORT INFORMATION
  Report Type: 
  Country: None (occurrence: None)
  Receive Date: 20050505
  Receipt Date: 20041203
  Transmission Date: 20051028
  Serious: Yes (Other)
  Sender: FDA-Public Use
  Company Number: GB-GLAXOSMITHKLINE-B0359568A

PATIENT
  Sex: Male

DRUGS (2)
  1. SEROXAT [Suspect]
     Dosage: 30MG UNKNOWN
     Route: 065
     Dates: end: 20030601
  2. FLUOXETINE [Concomitant]
     Route: 065
     Dates: start: 20030601, end: 20040501

REACTIONS (2)
  - COMPLETED SUICIDE [None]
  - WEIGHT INCREASED [None]
